FAERS Safety Report 16318399 (Version 1)
Quarter: 2019Q2

REPORT INFORMATION
  Report Type: Spontaneous
  Country: US (occurrence: US)
  Receive Date: 20190516
  Receipt Date: 20190516
  Transmission Date: 20190711
  Serious: No
  Sender: FDA-Public Use
  Company Number: US-GLAXOSMITHKLINE-US2019081660

PATIENT
  Age: 80 Year
  Sex: Female

DRUGS (4)
  1. CARVEDILOL TABLET [Suspect]
     Active Substance: CARVEDILOL
     Indication: HYPERTENSION
     Dosage: 3.125 MG, BID
     Route: 048
     Dates: start: 201809
  2. COREG CR [Suspect]
     Active Substance: CARVEDILOL PHOSPHATE
     Indication: HYPERTENSION
     Dosage: UNK
  3. ELIQUIS [Suspect]
     Active Substance: APIXABAN
     Indication: PRODUCT USED FOR UNKNOWN INDICATION
     Dosage: UNK
  4. COREG [Suspect]
     Active Substance: CARVEDILOL
     Indication: HYPERTENSION
     Dosage: 3.125 MG, BID

REACTIONS (11)
  - Cow^s milk intolerance [Not Recovered/Not Resolved]
  - Speech disorder [Unknown]
  - Skin reaction [Unknown]
  - Lip swelling [Not Recovered/Not Resolved]
  - Off label use [Unknown]
  - Tremor [Unknown]
  - Lip disorder [Unknown]
  - Condition aggravated [Not Recovered/Not Resolved]
  - Underdose [Unknown]
  - Paraesthesia [Not Recovered/Not Resolved]
  - Visual impairment [Not Recovered/Not Resolved]

NARRATIVE: CASE EVENT DATE: 201809
